FAERS Safety Report 7801712-X (Version None)
Quarter: 2011Q4

REPORT INFORMATION
  Report Type: 
  Country: None (occurrence: None)
  Receive Date: 20111007
  Receipt Date: 20110929
  Transmission Date: 20120403
  Serious: Yes (Hospitalization)
  Sender: FDA-Public Use
  Company Number: FI-CEPHALON-2011005217

PATIENT
  Sex: Female
  Weight: 63 kg

DRUGS (2)
  1. BENDAMUSTINE HCL [Suspect]
     Route: 042
     Dates: start: 20110314
  2. RITUXIMAB [Suspect]
     Route: 042
     Dates: start: 20110314

REACTIONS (1)
  - BRONCHITIS [None]
